FAERS Safety Report 9949549 (Version 1)
Quarter: 2014Q1

REPORT INFORMATION
  Report Type: Report from Study
  Country: US (occurrence: US)
  Receive Date: 20140304
  Receipt Date: 20140304
  Transmission Date: 20141002
  Serious: No
  Sender: FDA-Public Use
  Company Number: US-ABBVIE-13P-163-1068830-00

PATIENT
  Age: 38 Year
  Sex: Female

DRUGS (7)
  1. HUMIRA [Suspect]
     Indication: CROHN^S DISEASE
     Dates: start: 20121101, end: 20130316
  2. HUMIRA [Suspect]
     Dates: start: 20130316
  3. CLARITIN [Concomitant]
     Indication: HYPERSENSITIVITY
  4. ALBUTEROL [Concomitant]
     Indication: ASTHMA
     Dosage: EMERGENCY INHALER; EVERY FEW DAYS AS NEEDED
  5. Q AIR [Concomitant]
     Indication: PRODUCT USED FOR UNKNOWN INDICATION
     Dosage: EVERY AM
  6. MULTIVITAMIN [Concomitant]
     Indication: PRODUCT USED FOR UNKNOWN INDICATION
  7. IRON [Concomitant]
     Indication: BLOOD IRON DECREASED

REACTIONS (2)
  - Abdominal pain [Not Recovered/Not Resolved]
  - Injection site pain [Not Recovered/Not Resolved]
